APPROVED DRUG PRODUCT: HYDRALAZINE HYDROCHLORIDE
Active Ingredient: HYDRALAZINE HYDROCHLORIDE
Strength: 50MG
Dosage Form/Route: TABLET;ORAL
Application: A088468 | Product #001 | TE Code: AA
Applicant: PLIVA INC
Approved: May 1, 1984 | RLD: Yes | RS: Yes | Type: RX